FAERS Safety Report 8248731-X (Version None)
Quarter: 2012Q1

REPORT INFORMATION
  Report Type: 
  Country: None (occurrence: None)
  Receive Date: 20120331
  Receipt Date: 20120327
  Transmission Date: 20120608
  Serious: Yes (Hospitalization)
  Sender: FDA-Public Use
  Company Number: PHHY2011CA74463

PATIENT
  Sex: Female

DRUGS (10)
  1. PANTOLOC ^BYK GULDEN^ [Concomitant]
     Dosage: 40 MG, BID
  2. ZOLEDRONOC ACID [Suspect]
     Indication: OSTEOPOROSIS
     Dosage: 5 MG,
     Route: 042
     Dates: start: 20090824
  3. ZOLEDRONOC ACID [Suspect]
     Route: 042
     Dates: start: 20100824
  4. SYNTHROID [Concomitant]
     Dosage: 0.075 MG, QD
  5. VITAMIN D [Concomitant]
     Dosage: 200 U, QD
  6. CALTRATE PLUS [Concomitant]
     Dosage: 750 MG, QD
  7. VITAMIN E [Concomitant]
     Dosage: 200 U, QD
  8. CITALOPRAM HYDROBROMIDE [Concomitant]
     Dosage: 20 MG, QD
  9. PROLOPA [Concomitant]
     Dosage: 12.5 MG, BID
  10. MIRTAZAPINE [Concomitant]
     Dosage: 15 MG, QD

REACTIONS (4)
  - MEAN CELL VOLUME INCREASED [None]
  - GLOMERULAR FILTRATION RATE DECREASED [None]
  - BLOOD CREATININE INCREASED [None]
  - RED CELL DISTRIBUTION WIDTH INCREASED [None]
